FAERS Safety Report 23599751 (Version 1)
Quarter: 2024Q1

REPORT INFORMATION
  Report Type: Spontaneous
  Country: US (occurrence: US)
  Receive Date: 20240306
  Receipt Date: 20240306
  Transmission Date: 20240410
  Serious: Yes (Other)
  Sender: FDA-Public Use
  Company Number: US-AMGEN-USASP2024043551

PATIENT

DRUGS (3)
  1. CARFILZOMIB [Suspect]
     Active Substance: CARFILZOMIB
     Indication: Plasma cell myeloma refractory
     Dosage: UNK
     Route: 065
  2. MAGROLIMAB [Suspect]
     Active Substance: MAGROLIMAB
     Indication: Plasma cell myeloma refractory
     Dosage: 1 MILLIGRAM/KILOGRAM, PRIMING DOSE, FOLLOWED BY A MAINTENANCE DOSE OF 30 MG/KG EVERY WEEK DURING THE
     Route: 042
  3. DEXAMETHASONE [Suspect]
     Active Substance: DEXAMETHASONE
     Indication: Plasma cell myeloma refractory
     Route: 065

REACTIONS (8)
  - Neutrophil count decreased [Unknown]
  - Anaemia [Unknown]
  - Infusion related reaction [Unknown]
  - Thrombocytopenia [Unknown]
  - Pneumonia [Unknown]
  - Headache [Unknown]
  - Fatigue [Unknown]
  - Off label use [Unknown]
